FAERS Safety Report 9281150 (Version 3)
Quarter: 2013Q3

REPORT INFORMATION
  Report Type: Spontaneous
  Country: SE (occurrence: SE)
  Receive Date: 20130509
  Receipt Date: 20130806
  Transmission Date: 20140515
  Serious: Yes (Hospitalization, Other)
  Sender: FDA-Public Use
  Company Number: SE-ASTRAZENECA-2013SE30709

PATIENT
  Age: 32530 Day
  Sex: Male

DRUGS (5)
  1. ATACAND [Suspect]
     Route: 048
     Dates: end: 20130318
  2. OXYNORM [Concomitant]
  3. BIKALUTAMID SUN [Concomitant]
  4. PANODIL [Concomitant]
  5. MOVICOL [Concomitant]

REACTIONS (14)
  - Hypotension [Unknown]
  - Renal cancer [Unknown]
  - Prostate cancer [Unknown]
  - Pneumonia [Unknown]
  - Acquired phimosis [Unknown]
  - Influenza [Unknown]
  - Orthostatic hypotension [Unknown]
  - Vascular dementia [Unknown]
  - Dizziness [Unknown]
  - Confusional state [Unknown]
  - Body temperature decreased [Unknown]
  - Fall [Unknown]
  - Gait disturbance [Unknown]
  - Back pain [Unknown]
